FAERS Safety Report 8622772-2 (Version None)
Quarter: 2012Q3

REPORT INFORMATION
  Report Type: 
  Country: None (occurrence: None)
  Receive Date: 20120827
  Receipt Date: 20120816
  Transmission Date: 20120928
  Serious: Yes (Other)
  Sender: FDA-Public Use
  Company Number: US-JNJFOC-20120808326

PATIENT
  Age: 32 Year
  Sex: Male
  Weight: 104.33 kg

DRUGS (2)
  1. STELARA [Suspect]
     Indication: PSORIASIS
     Route: 058
  2. CELEBREX [Suspect]
     Indication: PRODUCT USED FOR UNKNOWN INDICATION
     Dosage: TWO WEEL PRIOR TO 20-APR-2012
     Route: 065
     Dates: end: 20120401

REACTIONS (2)
  - SPLENIC INFECTION [None]
  - EPSTEIN-BARR VIRUS TEST POSITIVE [None]
